FAERS Safety Report 22316617 (Version 1)
Quarter: 2023Q2

REPORT INFORMATION
  Report Type: Spontaneous
  Country: US (occurrence: US)
  Receive Date: 20230513
  Receipt Date: 20230513
  Transmission Date: 20230722
  Serious: No
  Sender: FDA-Public Use
  Company Number: US-009507513-2305USA002278

PATIENT

DRUGS (2)
  1. KEYTRUDA [Suspect]
     Active Substance: PEMBROLIZUMAB
     Indication: Soft tissue neoplasm
     Dosage: 200 MILLIGRAM, Q3W
  2. KEYTRUDA [Suspect]
     Active Substance: PEMBROLIZUMAB
     Indication: Connective tissue neoplasm

REACTIONS (3)
  - Therapy cessation [Unknown]
  - Product use in unapproved indication [Unknown]
  - No adverse event [Unknown]
